FAERS Safety Report 8517182-2 (Version None)
Quarter: 2012Q3

REPORT INFORMATION
  Report Type: 
  Country: None (occurrence: None)
  Receive Date: 20120706
  Receipt Date: 20120622
  Transmission Date: 20120928
  Serious: Yes (Hospitalization)
  Sender: FDA-Public Use
  Company Number: 1336818

PATIENT
  Age: 76 Year
  Sex: Male

DRUGS (12)
  1. LEVOFLOXACIN [Concomitant]
  2. (OMEPRAZOLE SODIUM) [Concomitant]
  3. GRANULOKINE [Concomitant]
  4. (IDROPLURIVIT) [Concomitant]
  5. DEXAMETHASONE SODIUM PHOSPHATE [Suspect]
     Dosage: 40 MG MILLIGRAM(S), UNKNOWN, INTRAMUSCULAR
     Route: 030
     Dates: start: 20120118, end: 20120120
  6. MABCAMPATH [Suspect]
     Dosage: 20 MG MILLIGRAM(S), UNKNOWN, SUBCUTANEOUS
     Route: 058
     Dates: start: 20120109, end: 20120111
  7. ACYCLOVIR [Concomitant]
  8. FLECAINIDE ACETATE [Concomitant]
  9. (FOLINA /00024201/) [Concomitant]
  10. FLUDARABINE PHOSPHATE [Suspect]
     Dosage: 38 MG MILLIGRAM(S), UNKNOWN, INTRAVENOUS (NOT OTHERWISE SPECIFIED)
     Route: 042
     Dates: start: 20120109, end: 20120111
  11. DECADRON [Suspect]
     Dosage: 40 MG MILLIGRAM(S), UNKNOWN, INTRAVENOUS (NOT OTHERWISE SPECIFIED)
     Route: 042
     Dates: start: 20120117, end: 20120117
  12. CYCLOPHOSPHAMIDE [Suspect]
     Dosage: 285 MG MILLIGRAM(S), UNKNOWN, INTRAVENOUS (NOT OTHERWISE SPECIFIED)
     Route: 042
     Dates: start: 20120109, end: 20120111

REACTIONS (3)
  - ABDOMINAL PAIN UPPER [None]
  - CYTOMEGALOVIRUS INFECTION [None]
  - OESOPHAGEAL CANDIDIASIS [None]
